FAERS Safety Report 10450250 (Version 1)
Quarter: 2014Q3

REPORT INFORMATION
  Report Type: Spontaneous
  Country: US (occurrence: US)
  Receive Date: 20140912
  Receipt Date: 20140912
  Transmission Date: 20150326
  Serious: Yes (Other)
  Sender: FDA-Public Use
  Company Number: US-TEVA-507640USA

PATIENT

DRUGS (2)
  1. IRBESARTAN. [Suspect]
     Active Substance: IRBESARTAN
     Route: 065
  2. FLUOXETINE [Suspect]
     Active Substance: FLUOXETINE\FLUOXETINE HYDROCHLORIDE
     Route: 065

REACTIONS (1)
  - Coeliac disease [Unknown]
